FAERS Safety Report 8248450-X (Version None)
Quarter: 2012Q1

REPORT INFORMATION
  Report Type: 
  Country: None (occurrence: None)
  Receive Date: 20120330
  Receipt Date: 20120322
  Transmission Date: 20120608
  Serious: Yes (Other)
  Sender: FDA-Public Use
  Company Number: US-ELI_LILLY_AND_COMPANY-US201111007561

PATIENT
  Sex: Female

DRUGS (5)
  1. COUMADIN [Concomitant]
     Dosage: 3 MG, UNK
  2. FORTEO [Suspect]
     Dosage: 20 UG, QD
  3. FORTEO [Suspect]
     Indication: OSTEOPOROSIS
     Dosage: 20 UG, QD
     Dates: start: 20111113
  4. STOOL SOFTENER [Concomitant]
     Indication: CONSTIPATION
     Dosage: UNK
  5. CALCIUM CARBONATE [Concomitant]

REACTIONS (13)
  - BLOOD TEST ABNORMAL [None]
  - DECREASED APPETITE [None]
  - INJECTION SITE HAEMORRHAGE [None]
  - NAUSEA [None]
  - CHONDROPATHY [None]
  - BACK PAIN [None]
  - ASTHENIA [None]
  - MUSCULOSKELETAL DISORDER [None]
  - NEOPLASM PROGRESSION [None]
  - DYSSTASIA [None]
  - ARTHRALGIA [None]
  - INJECTION SITE HAEMATOMA [None]
  - CHOKING [None]
